FAERS Safety Report 23833487 (Version 1)
Quarter: 2024Q2

REPORT INFORMATION
  Report Type: Report from Study
  Country: US (occurrence: US)
  Receive Date: 20240508
  Receipt Date: 20240508
  Transmission Date: 20240715
  Serious: Yes (Other)
  Sender: FDA-Public Use
  Company Number: US-ABBVIE-5326530

PATIENT
  Sex: Male

DRUGS (1)
  1. SKYRIZI [Suspect]
     Active Substance: RISANKIZUMAB-RZAA
     Indication: Psoriasis
     Route: 058
     Dates: start: 20240112

REACTIONS (4)
  - Neuropathy peripheral [Unknown]
  - Mobility decreased [Unknown]
  - Gait inability [Unknown]
  - Depression [Unknown]

NARRATIVE: CASE EVENT DATE: 20240101
